FAERS Safety Report 7014758-9 (Version None)
Quarter: 2010Q3

REPORT INFORMATION
  Report Type: 
  Country: None (occurrence: None)
  Receive Date: 20100927
  Receipt Date: 20100914
  Transmission Date: 20110219
  Serious: Yes (Hospitalization)
  Sender: FDA-Public Use
  Company Number: IT-CELGENEUS-083-21880-10091313

PATIENT
  Sex: Male
  Weight: 58.5 kg

DRUGS (8)
  1. REVLIMID [Suspect]
     Route: 048
     Dates: start: 20100712
  2. REVLIMID [Suspect]
     Route: 048
     Dates: start: 20100726, end: 20100728
  3. REVLIMID [Suspect]
     Route: 048
     Dates: start: 20100826, end: 20100910
  4. ARANESP [Concomitant]
     Indication: PRODUCT USED FOR UNKNOWN INDICATION
     Route: 065
     Dates: end: 20100909
  5. ZYLORIC [Concomitant]
     Indication: PRODUCT USED FOR UNKNOWN INDICATION
     Route: 065
  6. BACTRIM [Concomitant]
     Indication: PRODUCT USED FOR UNKNOWN INDICATION
     Route: 065
  7. ACYCLOVIR SODIUM [Concomitant]
     Indication: PRODUCT USED FOR UNKNOWN INDICATION
     Route: 065
  8. SELEPARINA [Concomitant]
     Indication: PRODUCT USED FOR UNKNOWN INDICATION
     Dosage: 3800 IU/ 0.4ML
     Route: 065
     Dates: end: 20100730

REACTIONS (2)
  - GENERAL PHYSICAL HEALTH DETERIORATION [None]
  - RENAL FAILURE [None]
